FAERS Safety Report 12098418 (Version 1)
Quarter: 2016Q1

REPORT INFORMATION
  Report Type: Spontaneous
  Country: US (occurrence: US)
  Receive Date: 20160222
  Receipt Date: 20160222
  Transmission Date: 20160526
  Serious: No
  Sender: FDA-Public Use
  Company Number: US-ALLERGAN-1508746US

PATIENT
  Age: 77 Year
  Sex: Female

DRUGS (2)
  1. ZYMAXID [Concomitant]
     Active Substance: GATIFLOXACIN
  2. RESTASIS [Suspect]
     Active Substance: CYCLOSPORINE
     Indication: DRY EYE
     Dosage: 2 GTT, BID
     Route: 047
     Dates: start: 2011

REACTIONS (6)
  - Macular degeneration [Unknown]
  - Eye pain [Recovered/Resolved]
  - Drug ineffective [Unknown]
  - Ocular hyperaemia [Recovered/Resolved]
  - Wrong technique in product usage process [Unknown]
  - Contact lens intolerance [Recovered/Resolved]

NARRATIVE: CASE EVENT DATE: 201504
